FAERS Safety Report 9624218 (Version 1)
Quarter: 2013Q4

REPORT INFORMATION
  Report Type: Spontaneous
  Country: US (occurrence: US)
  Receive Date: 20131015
  Receipt Date: 20131015
  Transmission Date: 20140711
  Serious: Yes (Life-Threatening, Hospitalization)
  Sender: FDA-Public Use
  Company Number: US-BRISTOL-MYERS SQUIBB COMPANY-19526714

PATIENT
  Age: 26 Year
  Sex: Male

DRUGS (5)
  1. ABILIFY [Suspect]
     Dates: start: 201004
  2. REBIF [Suspect]
     Indication: MULTIPLE SCLEROSIS
     Route: 058
     Dates: start: 20080915
  3. ZOLOFT [Suspect]
     Dates: start: 2010
  4. BACLOFEN [Suspect]
  5. ATIVAN [Suspect]

REACTIONS (13)
  - Suicide attempt [Recovered/Resolved]
  - Intentional overdose [Recovered/Resolved]
  - Abnormal behaviour [Recovered/Resolved]
  - Mood swings [Recovered/Resolved]
  - Grand mal convulsion [Recovered/Resolved]
  - Dehydration [Recovered/Resolved]
  - Depression [Recovered/Resolved]
  - Intervertebral disc protrusion [Recovering/Resolving]
  - Back injury [Recovering/Resolving]
  - Fall [Recovered/Resolved]
  - Gait disturbance [Recovering/Resolving]
  - Loss of consciousness [Unknown]
  - Hypersomnia [Unknown]
